FAERS Safety Report 9174048 (Version 3)
Quarter: 2013Q3

REPORT INFORMATION
  Report Type: Spontaneous
  Country: US (occurrence: US)
  Receive Date: 20130320
  Receipt Date: 20130822
  Transmission Date: 20140515
  Serious: Yes (Other)
  Sender: FDA-Public Use
  Company Number: US-PFIZER INC-2013086153

PATIENT
  Age: 31 Year
  Sex: Female

DRUGS (4)
  1. ZITHROMAX [Suspect]
     Indication: SINUSITIS
     Dosage: UNK
     Dates: start: 200007, end: 200007
  2. ZITHROMAX [Suspect]
     Indication: UPPER RESPIRATORY TRACT INFECTION
  3. ZITHROMAX [Suspect]
     Indication: HAEMOPHILUS INFECTION
  4. CIPRO [Suspect]
     Indication: URINARY TRACT INFECTION
     Dosage: UNK
     Dates: start: 200007, end: 200007

REACTIONS (14)
  - Urinary tract infection [Unknown]
  - Hypersensitivity [Unknown]
  - Hepatic enzyme abnormal [Unknown]
  - Urticaria [Unknown]
  - Alopecia [Recovered/Resolved]
  - Swelling [Recovered/Resolved]
  - Eosinophilia [Unknown]
  - Fatigue [Unknown]
  - Rash [Unknown]
  - Skin irritation [Unknown]
  - Skin exfoliation [Unknown]
  - Dry skin [Unknown]
  - Antinuclear antibody positive [Unknown]
  - Gamma-glutamyltransferase increased [Unknown]
